FAERS Safety Report 23845867 (Version 1)
Quarter: 2024Q2

REPORT INFORMATION
  Report Type: Spontaneous
  Country: US (occurrence: US)
  Receive Date: 20240512
  Receipt Date: 20240512
  Transmission Date: 20240717
  Serious: No
  Sender: FDA-Public Use
  Company Number: US-CIPLA LTD.-2023US07173

PATIENT

DRUGS (3)
  1. ALBUTEROL [Suspect]
     Active Substance: ALBUTEROL
     Indication: Asthma
     Dosage: 2 PUFFS, BID
  2. ALBUTEROL [Suspect]
     Active Substance: ALBUTEROL
     Indication: Bronchospasm
  3. SYMBICORT [Concomitant]
     Active Substance: BUDESONIDE\FORMOTEROL FUMARATE DIHYDRATE
     Indication: Asthma
     Dosage: 2 PUFFS, QD
     Route: 065

REACTIONS (1)
  - Viral test positive [Unknown]
